FAERS Safety Report 4478367-8 (Version None)
Quarter: 2004Q4

REPORT INFORMATION
  Report Type: 
  Country: None (occurrence: None)
  Receive Date: 20041018
  Receipt Date: 20041018
  Transmission Date: 20050328
  Serious: Yes (Hospitalization)
  Sender: FDA-Public Use
  Company Number: None

PATIENT
  Age: 58 Year
  Sex: Male

DRUGS (1)
  1. WARFARIN SODIUM [Suspect]
     Indication: ATRIAL FIBRILLATION
     Dosage: 5 MG  ORAL
     Route: 048
     Dates: start: 20040720, end: 20041006

REACTIONS (3)
  - DRUG TOXICITY [None]
  - INCREASED TENDENCY TO BRUISE [None]
  - INTERNATIONAL NORMALISED RATIO INCREASED [None]
